FAERS Safety Report 14487574 (Version 4)
Quarter: 2018Q2

REPORT INFORMATION
  Report Type: Spontaneous
  Country: CA (occurrence: CA)
  Receive Date: 20180205
  Receipt Date: 20180613
  Transmission Date: 20180711
  Serious: Yes (Other)
  Sender: FDA-Public Use
  Company Number: CA-PFIZER INC-2018049123

PATIENT
  Age: 78 Year
  Sex: Male
  Weight: 82 kg

DRUGS (7)
  1. ASA [Suspect]
     Active Substance: ASPIRIN
     Dosage: 81 MG, QD
     Route: 065
  2. APO-RAMIPRIL [Suspect]
     Active Substance: RAMIPRIL
     Dosage: 2.5 MG, QD
     Route: 065
  3. TICAGRELOR. [Suspect]
     Active Substance: TICAGRELOR
     Dosage: UNK
     Route: 065
  4. PANTOPRAZOLE [Suspect]
     Active Substance: PANTOPRAZOLE
     Dosage: 40 MG, QD
     Route: 065
  5. APO-METOPROLOL [Suspect]
     Active Substance: METOPROLOL
     Dosage: 25 MG, QD
     Route: 048
  6. LUMIGAN [Suspect]
     Active Substance: BIMATOPROST
     Dosage: UNK
     Route: 065
  7. APO-SIMVASTATIN [Suspect]
     Active Substance: SIMVASTATIN
     Dosage: 20 MG, QD
     Route: 065

REACTIONS (10)
  - Sinus bradycardia [Unknown]
  - Emotional disorder [Unknown]
  - Chest X-ray abnormal [Recovered/Resolved]
  - Nausea [Unknown]
  - Computerised tomogram head abnormal [Unknown]
  - Personality change [Unknown]
  - Anaemia [Unknown]
  - Vomiting [Unknown]
  - Clumsiness [Unknown]
  - Gait disturbance [Unknown]

NARRATIVE: CASE EVENT DATE: 20170622
